FAERS Safety Report 5078730-0 (Version None)
Quarter: 2006Q3

REPORT INFORMATION
  Report Type: 
  Country: None (occurrence: None)
  Receive Date: 20060720
  Receipt Date: 20060619
  Transmission Date: 20061208
  Serious: Yes (Other)
  Sender: FDA-Public Use
  Company Number: HQWYE328921JUN06

PATIENT
  Age: 56 Year
  Sex: Female
  Weight: 49.49 kg

DRUGS (2)
  1. ADVIL PM [Suspect]
     Indication: INSOMNIA
     Dosage: 2 CAPLETS ONCE, ORAL
     Route: 048
     Dates: start: 20060601, end: 20060601
  2. FOSMAX (ALENDRONATE SODIUM) [Concomitant]

REACTIONS (2)
  - DRUG INEFFECTIVE [None]
  - NERVOUSNESS [None]
